FAERS Safety Report 4367118-3 (Version None)
Quarter: 2004Q2

REPORT INFORMATION
  Report Type: 
  Country: None (occurrence: None)
  Receive Date: 20040528
  Receipt Date: 20040520
  Transmission Date: 20050107
  Serious: Yes (Other)
  Sender: FDA-Public Use
  Company Number: US-GLAXOSMITHKLINE-A0511632A

PATIENT
  Age: 17 Year
  Sex: Female

DRUGS (3)
  1. PAXIL CR [Suspect]
     Indication: HEADACHE
     Dosage: 12.5MG PER DAY
     Route: 048
     Dates: start: 20040211, end: 20040218
  2. PAXIL [Suspect]
     Indication: HEADACHE
     Route: 048
     Dates: start: 20040218
  3. TRAZODONE HCL [Concomitant]

REACTIONS (8)
  - AFFECT LABILITY [None]
  - AGGRESSION [None]
  - DISTURBANCE IN ATTENTION [None]
  - DIZZINESS [None]
  - DRUG WITHDRAWAL SYNDROME [None]
  - NAUSEA [None]
  - PANIC ATTACK [None]
  - SOMNOLENCE [None]
